FAERS Safety Report 7366419-4 (Version None)
Quarter: 2011Q1

REPORT INFORMATION
  Report Type: 
  Country: None (occurrence: None)
  Receive Date: 20110322
  Receipt Date: 20110308
  Transmission Date: 20110831
  Serious: Yes (Hospitalization)
  Sender: FDA-Public Use
  Company Number: US-JNJFOC-20091103625

PATIENT
  Sex: Female
  Weight: 43.5 kg

DRUGS (8)
  1. VITAMIN B [Concomitant]
  2. CALCIUM AND VITAMIN D [Concomitant]
  3. 5-AMINOSALICYLIC ACID [Concomitant]
     Route: 048
  4. IRON [Concomitant]
  5. REMICADE [Suspect]
     Indication: CROHN'S DISEASE
     Dosage: TOTAL 14 DOSES
     Route: 042
  6. FOLIC ACID [Concomitant]
  7. FLAGYL [Concomitant]
  8. REMICADE [Suspect]
     Route: 042

REACTIONS (2)
  - PHARYNGITIS STREPTOCOCCAL [None]
  - CROHN'S DISEASE [None]
